FAERS Safety Report 9597645 (Version 1)
Quarter: 2013Q4

REPORT INFORMATION
  Report Type: Other
  Country: GR (occurrence: GR)
  Receive Date: 20131004
  Receipt Date: 20131004
  Transmission Date: 20140711
  Serious: Yes (Other)
  Sender: FDA-Public Use
  Company Number: GR-BRISTOL-MYERS SQUIBB COMPANY-19489491

PATIENT
  Age: 22 Year
  Sex: Male

DRUGS (7)
  1. ETOPOSIDE [Suspect]
     Indication: SEMINOMA
     Dosage: BETWEEN MAY AND AUGUST 2009?SUP(2)/DAY
     Dates: start: 2009
  2. CARBOPLATIN [Suspect]
     Indication: SEMINOMA
     Dosage: BETWEEN MAY AND AUGUST 2009?1DF:AUC6 MG/ML
     Dates: start: 2009
  3. PACLITAXEL [Suspect]
     Indication: SEMINOMA
     Dosage: BETWEEN NOV 2009 AND JAN 2010
  4. IFOSFAMIDE [Suspect]
     Indication: SEMINOMA
     Dosage: BETWEEN NOV 2009 AND JAN 2010
  5. CISPLATIN [Suspect]
     Indication: SEMINOMA
     Dosage: BETWEEN NOV 2009 AND JAN 2010
  6. BLEOMYCIN SULFATE [Suspect]
     Dosage: BETWEEN MAY AND AUGUST 2009
     Dates: start: 2009
  7. CYCLOPHOSPHAMIDE [Suspect]
     Indication: SEMINOMA
     Dosage: SUP(2)/DAY

REACTIONS (4)
  - Neutropenia [Recovered/Resolved]
  - Thrombocytopenia [Recovered/Resolved]
  - Cystitis haemorrhagic [Unknown]
  - Mucosal inflammation [Unknown]
